FAERS Safety Report 14421052 (Version 3)
Quarter: 2018Q1

REPORT INFORMATION
  Report Type: Report from Study
  Country: US (occurrence: US)
  Receive Date: 20180122
  Receipt Date: 20180129
  Transmission Date: 20180509
  Serious: Yes (Hospitalization)
  Sender: FDA-Public Use
  Company Number: US-PFIZER INC-2018024211

PATIENT
  Age: 69 Year
  Sex: Male
  Weight: 78 kg

DRUGS (7)
  1. CALCIUM FOLINATE [Suspect]
     Active Substance: LEUCOVORIN CALCIUM
     Indication: COLON CANCER
     Dosage: 776 MG, UNK
     Route: 042
     Dates: start: 20180103
  2. ATORVASTATIN [Concomitant]
     Active Substance: ATORVASTATIN
     Dosage: 40 MG, 1X/DAY
     Route: 048
  3. AVELUMAB [Suspect]
     Active Substance: AVELUMAB
     Indication: COLON CANCER
     Dosage: 764 MG, CYCLIC (ONCE IN EVERY TWO WEEKS)
     Route: 042
     Dates: start: 20180102
  4. ETBX-011 [Suspect]
     Active Substance: INVESTIGATIONAL PRODUCT
     Indication: COLON CANCER
     Dosage: 5 X 10E11 VIRAL PARTICLES
     Route: 058
     Dates: start: 20180102
  5. OXALIPLATIN. [Suspect]
     Active Substance: OXALIPLATIN
     Indication: COLON CANCER
     Dosage: 165 MG, UNK
     Route: 042
     Dates: start: 20180103
  6. FLUOROURACIL. [Suspect]
     Active Substance: FLUOROURACIL
     Indication: COLON CANCER
     Dosage: 2330 MG, UNK
     Route: 042
     Dates: start: 20180103
  7. ASPIRIN /00002701/ [Concomitant]
     Active Substance: ASPIRIN
     Dosage: 81 MG, 1X/DAY
     Route: 048

REACTIONS (2)
  - Arteriospasm coronary [Recovered/Resolved]
  - Nausea [Unknown]

NARRATIVE: CASE EVENT DATE: 20180105
